FAERS Safety Report 5269962-7 (Version None)
Quarter: 2007Q1

REPORT INFORMATION
  Report Type: 
  Country: None (occurrence: None)
  Receive Date: 20061212
  Receipt Date: 20060321
  Transmission Date: 20070707
  Serious: No
  Sender: FDA-Public Use
  Company Number: RS005871-USA

PATIENT
  Age: 62 Year
  Sex: Female

DRUGS (1)
  1. ACIPHEX [Suspect]
     Dosage: ORAL
     Route: 048

REACTIONS (1)
  - DEAFNESS [None]
